FAERS Safety Report 11067258 (Version 2)
Quarter: 2015Q3

REPORT INFORMATION
  Report Type: Spontaneous
  Country: US (occurrence: US)
  Receive Date: 20150426
  Receipt Date: 20150713
  Transmission Date: 20151125
  Serious: No
  Sender: FDA-Public Use
  Company Number: US-B.I. PHARMACEUTICALS,INC./RIDGEFIELD-2015-BI-20005BP

PATIENT
  Age: 54 Year
  Sex: Female
  Weight: 77 kg

DRUGS (4)
  1. COMBIVENT [Suspect]
     Active Substance: ALBUTEROL SULFATE\IPRATROPIUM BROMIDE
     Dosage: 12 PUF
     Route: 055
     Dates: start: 201504
  2. COMBIVENT [Suspect]
     Active Substance: ALBUTEROL SULFATE\IPRATROPIUM BROMIDE
     Indication: ASTHMA
     Dosage: STRENGTH: 20 MCG / 100 MCG; DAILY DOSE: 20 MCG / 100 MCG
     Route: 055
     Dates: start: 201406
  3. ADVAIR HFA [Concomitant]
     Active Substance: FLUTICASONE PROPIONATE\SALMETEROL XINAFOATE
     Indication: ASTHMA
     Dosage: STRENGTH: 250 MCG/50 MCG; DAILY DOSE: 500 MCG/100 MCG
     Route: 055
     Dates: start: 1995
  4. ARMOUR [Concomitant]
     Indication: HYPOTHYROIDISM
     Dosage: 30 MG
     Route: 048
     Dates: start: 201503

REACTIONS (4)
  - Overdose [Not Recovered/Not Resolved]
  - Off label use [Unknown]
  - Drug ineffective [Not Recovered/Not Resolved]
  - Product quality issue [Unknown]

NARRATIVE: CASE EVENT DATE: 201504
